FAERS Safety Report 7388519-5 (Version None)
Quarter: 2011Q2

REPORT INFORMATION
  Report Type: 
  Country: None (occurrence: None)
  Receive Date: 20110401
  Receipt Date: 20110329
  Transmission Date: 20111010
  Serious: Yes (Other)
  Sender: FDA-Public Use
  Company Number: US-JNJFOC-20100303027

PATIENT
  Sex: Male
  Weight: 96.62 kg

DRUGS (19)
  1. LEVAQUIN [Suspect]
     Route: 048
  2. LEVAQUIN [Suspect]
     Route: 048
  3. LEVAQUIN [Suspect]
     Indication: COUGH
     Route: 048
  4. METOPROLOL [Concomitant]
     Indication: CARDIOMYOPATHY
     Route: 048
  5. WARFARIN [Concomitant]
     Indication: THROMBOSIS PROPHYLAXIS
     Route: 048
  6. LEVAQUIN [Suspect]
     Route: 048
  7. TOPROL-XL [Concomitant]
     Indication: ATRIAL FIBRILLATION
     Route: 065
  8. LEVAQUIN [Suspect]
     Indication: BODY TEMPERATURE INCREASED
     Route: 048
  9. LISINOPRIL [Concomitant]
     Indication: HYPERTENSION
     Route: 065
  10. LISINOPRIL [Concomitant]
     Indication: CARDIOMYOPATHY
     Route: 065
  11. LEVAQUIN [Suspect]
     Indication: BRONCHITIS
     Route: 048
  12. LEVAQUIN [Suspect]
     Indication: RESPIRATORY TRACT INFECTION
     Route: 048
  13. LEVAQUIN [Suspect]
     Indication: RHINORRHOEA
     Route: 048
  14. METHYLPREDNISOLONE ACETATE [Concomitant]
     Indication: RESPIRATORY TRACT INFECTION
     Route: 065
  15. LEVAQUIN [Suspect]
     Route: 048
  16. LEVOTHYROXINE SODIUM [Concomitant]
     Indication: HYPOTHYROIDISM
     Route: 048
  17. LEVAQUIN [Suspect]
     Route: 048
  18. COUMADIN [Concomitant]
     Indication: ATRIAL FIBRILLATION
     Route: 065
  19. METOPROLOL [Concomitant]
     Indication: HYPERTENSION
     Route: 048

REACTIONS (14)
  - URTICARIA [None]
  - MICTURITION DISORDER [None]
  - HYPERSENSITIVITY [None]
  - BALANCE DISORDER [None]
  - DYSURIA [None]
  - RASH GENERALISED [None]
  - INTERNATIONAL NORMALISED RATIO INCREASED [None]
  - ARTHRALGIA [None]
  - FALL [None]
  - GAIT DISTURBANCE [None]
  - EXERCISE TOLERANCE DECREASED [None]
  - PRURITUS GENERALISED [None]
  - INSOMNIA [None]
  - PAIN [None]
